FAERS Safety Report 9307125 (Version 1)
Quarter: 2013Q2

REPORT INFORMATION
  Report Type: Report from Study
  Country: CN (occurrence: CN)
  Receive Date: 20130524
  Receipt Date: 20130524
  Transmission Date: 20140414
  Serious: Yes (Other)
  Sender: FDA-Public Use
  Company Number: CN-ROCHE-1143994

PATIENT
  Age: 62 Year
  Sex: Female

DRUGS (3)
  1. PEG-INTERFERON ALFA 2A [Suspect]
     Indication: HEPATITIS C
     Route: 058
     Dates: start: 20120523, end: 201208
  2. PEG-INTERFERON ALFA 2A [Suspect]
     Route: 058
     Dates: start: 20120908
  3. PEG-INTERFERON ALFA 2A [Suspect]
     Route: 058
     Dates: end: 201304

REACTIONS (3)
  - White blood cell count decreased [Unknown]
  - Platelet count decreased [Recovering/Resolving]
  - Neutrophil count decreased [Not Recovered/Not Resolved]
